FAERS Safety Report 9717571 (Version 2)
Quarter: 2015Q3

REPORT INFORMATION
  Report Type: Spontaneous
  Country: US (occurrence: US)
  Receive Date: 20131127
  Receipt Date: 20150804
  Transmission Date: 20151125
  Serious: Yes (Hospitalization)
  Sender: FDA-Public Use
  Company Number: US-GILEAD-2009-0020816

PATIENT
  Age: 78 Year
  Sex: Female

DRUGS (13)
  1. SYNTHROID [Concomitant]
     Active Substance: LEVOTHYROXINE SODIUM
  2. CARDIZEM [Concomitant]
     Active Substance: DILTIAZEM HYDROCHLORIDE
  3. POTASSIUM CHLORIDE. [Concomitant]
     Active Substance: POTASSIUM CHLORIDE
  4. BUMEX [Concomitant]
     Active Substance: BUMETANIDE
  5. LEVEMIR [Concomitant]
     Active Substance: INSULIN DETEMIR
  6. CRESTOR [Concomitant]
     Active Substance: ROSUVASTATIN CALCIUM
  7. COUMADIN [Concomitant]
     Active Substance: WARFARIN SODIUM
  8. COREG [Concomitant]
     Active Substance: CARVEDILOL
  9. LETAIRIS [Suspect]
     Active Substance: AMBRISENTAN
     Indication: PULMONARY ARTERIAL HYPERTENSION
     Route: 048
  10. DIOVAN [Concomitant]
     Active Substance: VALSARTAN
  11. PROVENTIL [Concomitant]
     Active Substance: ALBUTEROL
  12. NOVOLOG [Concomitant]
     Active Substance: INSULIN ASPART
  13. TRAMADOL. [Concomitant]
     Active Substance: TRAMADOL

REACTIONS (1)
  - Dyspnoea [Unknown]
